FAERS Safety Report 19356996 (Version 1)
Quarter: 2021Q2

REPORT INFORMATION
  Report Type: Spontaneous
  Country: US (occurrence: US)
  Receive Date: 20210602
  Receipt Date: 20210602
  Transmission Date: 20210717
  Serious: No
  Sender: FDA-Public Use
  Company Number: US-ORGANON-O2105USA002374

PATIENT
  Sex: Female
  Weight: 59 kg

DRUGS (1)
  1. NEXPLANON [Suspect]
     Active Substance: ETONOGESTREL
     Indication: CONTRACEPTION
     Dosage: 1 IMPLANT
     Route: 059
     Dates: start: 2019

REACTIONS (5)
  - Menstrual disorder [Unknown]
  - Breast pain [Unknown]
  - Dysmenorrhoea [Unknown]
  - Increased tendency to bruise [Unknown]
  - Headache [Unknown]
